FAERS Safety Report 10914139 (Version 1)
Quarter: 2015Q1

REPORT INFORMATION
  Report Type: Report from Study
  Country: US (occurrence: US)
  Receive Date: 20150313
  Receipt Date: 20150313
  Transmission Date: 20150721
  Serious: Yes (Death)
  Sender: FDA-Public Use
  Company Number: US-INCYTE CORPORATION-2015IN000904

PATIENT
  Sex: Male
  Weight: 97.9 kg

DRUGS (2)
  1. INCB018424 (RUXOLITINIB) [Suspect]
     Active Substance: RUXOLITINIB
     Indication: MYELOFIBROSIS
     Dosage: 10 MG, EVERY 12 HOURS
     Route: 048
     Dates: start: 20130724
  2. DANAZOL. [Suspect]
     Active Substance: DANAZOL
     Indication: MYELOFIBROSIS
     Dosage: 200 MG, EVERY 8 HOURS
     Route: 048
     Dates: start: 20130724

REACTIONS (1)
  - Death [Fatal]

NARRATIVE: CASE EVENT DATE: 20150301
